FAERS Safety Report 11664105 (Version 1)
Quarter: 2015Q4

REPORT INFORMATION
  Report Type: Spontaneous
  Country: GB (occurrence: GB)
  Receive Date: 20151027
  Receipt Date: 20151027
  Transmission Date: 20160304
  Serious: Yes (Other)
  Sender: FDA-Public Use
  Company Number: GB-SUN PHARMACEUTICAL INDUSTRIES LTD-2015RR-105164

PATIENT

DRUGS (8)
  1. ASPIRIN. [Concomitant]
     Active Substance: ASPIRIN
     Indication: THROMBOSIS PROPHYLAXIS
     Dosage: MORNING
     Route: 065
     Dates: start: 1998, end: 20150722
  2. LACTULOSE. [Concomitant]
     Active Substance: LACTULOSE
     Indication: CONSTIPATION
     Dosage: 30 ML, QD
     Route: 065
     Dates: start: 201403
  3. ALFUZOSIN [Suspect]
     Active Substance: ALFUZOSIN
     Indication: BENIGN PROSTATIC HYPERPLASIA
     Dosage: 2.5 MG, BID
     Route: 048
     Dates: start: 20150410, end: 20150703
  4. OMEPRAZOLE. [Concomitant]
     Active Substance: OMEPRAZOLE
     Indication: HIATUS HERNIA
     Dosage: MORNING
     Route: 065
     Dates: start: 2000
  5. ADCAL-D3 [Concomitant]
     Active Substance: CALCIUM CARBONATE\CHOLECALCIFEROL
     Indication: OSTEOPOROSIS
     Dosage: 1 DF, BID
     Route: 065
     Dates: start: 200806
  6. FLUDROCORTISONE [Concomitant]
     Active Substance: FLUDROCORTISONE
     Indication: ORTHOSTATIC HYPOTENSION
     Dosage: 1000 ?G, BID
     Route: 065
     Dates: start: 201108
  7. NAPROXEN. [Concomitant]
     Active Substance: NAPROXEN
     Indication: BACK PAIN
     Dosage: 500 MG, BID
     Route: 065
     Dates: start: 20150601, end: 20150722
  8. PARACETAMOL [Concomitant]
     Active Substance: ACETAMINOPHEN
     Indication: SCIATICA
     Dosage: FREQ: QDS
     Route: 065
     Dates: start: 20150716

REACTIONS (3)
  - Rash [Unknown]
  - Swelling [Recovering/Resolving]
  - Cellulitis [Unknown]

NARRATIVE: CASE EVENT DATE: 2015
